FAERS Safety Report 16813141 (Version 1)
Quarter: 2019Q3

REPORT INFORMATION
  Report Type: Other
  Country: US (occurrence: US)
  Receive Date: 20190916
  Receipt Date: 20190916
  Transmission Date: 20191005
  Serious: No
  Sender: FDA-Public Use
  Company Number: US-LEADIANT BIOSCIENCES INC-2019STPI000189

PATIENT
  Sex: Male

DRUGS (3)
  1. GLEOSTINE [Concomitant]
     Active Substance: LOMUSTINE
  2. MATULANE [Suspect]
     Active Substance: PROCARBAZINE HYDROCHLORIDE
     Indication: BRAIN NEOPLASM MALIGNANT
     Dosage: 50MG, QD ON DAY 8
     Route: 048
     Dates: start: 20180808
  3. MATULANE [Suspect]
     Active Substance: PROCARBAZINE HYDROCHLORIDE
     Dosage: 150 MG, QD, DAYS 9 TO 21
     Route: 048

REACTIONS (3)
  - Nausea [Unknown]
  - Fatigue [Unknown]
  - Paraesthesia [Unknown]
